FAERS Safety Report 5050786-0 (Version None)
Quarter: 2006Q3

REPORT INFORMATION
  Report Type: 
  Country: None (occurrence: None)
  Receive Date: 20060707
  Receipt Date: 20060627
  Transmission Date: 20061208
  Serious: Yes (Death, Life-Threatening)
  Sender: FDA-Public Use
  Company Number: HQWYE722810APR06

PATIENT
  Age: 69 Year
  Sex: Female

DRUGS (11)
  1. MYLOTARG [Suspect]
     Indication: ACUTE MYELOID LEUKAEMIA RECURRENT
     Dosage: A SINGLE 9 MG/M^2 DOSE
     Route: 041
     Dates: start: 20060405, end: 20060405
  2. MYLOTARG [Suspect]
     Indication: ACUTE MYELOID LEUKAEMIA RECURRENT
     Dosage: A SINGLE 9 MG/M^2 DOSE
     Route: 041
     Dates: start: 20060517, end: 20060517
  3. CEFTAZIDIME [Concomitant]
  4. ANTITHROMBIN III (ANTITHROMBIN III) [Concomitant]
  5. NORMAL HUMAN IMMUNOGLOBULIN (NORMAL HUMAN IMMUNOGLOBULIN) [Concomitant]
  6. AMIKACIN SULFATE [Suspect]
     Dosage: 400 MG 1X PER 1 DAY; 200 MG 1X PER 1 DAY
     Route: 041
     Dates: start: 20060330, end: 20060407
  7. AMIKACIN SULFATE [Suspect]
     Dosage: 400 MG 1X PER 1 DAY; 200 MG 1X PER 1 DAY
     Route: 041
     Dates: start: 20060408, end: 20060421
  8. MEROPEN (MEROPENEM,) [Suspect]
     Dosage: 1 G 1X  PER 1 DAY; 2 G 1X PER 1 DAY
     Route: 041
     Dates: start: 20060404, end: 20060407
  9. MEROPEN (MEROPENEM,) [Suspect]
     Dosage: 1 G 1X  PER 1 DAY; 2 G 1X PER 1 DAY
     Route: 041
     Dates: start: 20060408, end: 20060421
  10. FRAGMIN [Concomitant]
  11. VFEND (VORINCONAZOLE) [Concomitant]

REACTIONS (22)
  - ACTIVATED PARTIAL THROMBOPLASTIN TIME SHORTENED [None]
  - ALANINE AMINOTRANSFERASE INCREASED [None]
  - ASPARTATE AMINOTRANSFERASE INCREASED [None]
  - BLOOD CALCIUM DECREASED [None]
  - BLOOD CREATININE DECREASED [None]
  - BLOOD CREATININE INCREASED [None]
  - BLOOD LACTATE DEHYDROGENASE INCREASED [None]
  - BLOOD POTASSIUM DECREASED [None]
  - BLOOD SODIUM DECREASED [None]
  - BLOOD SODIUM INCREASED [None]
  - BLOOD UREA INCREASED [None]
  - CHILLS [None]
  - LIVER DISORDER [None]
  - PLATELET COUNT DECREASED [None]
  - PULMONARY HAEMORRHAGE [None]
  - PULMONARY OEDEMA [None]
  - RENAL FAILURE [None]
  - RHABDOMYOLYSIS [None]
  - SEPSIS [None]
  - TUMOUR LYSIS SYNDROME [None]
  - WHEEZING [None]
  - WHITE BLOOD CELL COUNT DECREASED [None]
